FAERS Safety Report 5217533-0 (Version None)
Quarter: 2007Q1

REPORT INFORMATION
  Report Type: 
  Country: None (occurrence: None)
  Receive Date: 20070119
  Receipt Date: 20070109
  Transmission Date: 20070707
  Serious: Yes (Hospitalization)
  Sender: FDA-Public Use
  Company Number: 2007-152740-NL

PATIENT
  Age: 30 Year
  Sex: Female

DRUGS (7)
  1. MIRTAZAPINE [Suspect]
     Dosage: 2 DF ORAL
     Route: 048
     Dates: end: 20051213
  2. VALPROATE SODIUM [Suspect]
     Dosage: 2 DF ORAL
     Route: 048
     Dates: end: 20051213
  3. GABAPENTIN [Suspect]
     Dosage: 1 DF ORAL
     Route: 048
     Dates: start: 20051119, end: 20051208
  4. DEXPANTHENOL [Concomitant]
  5. BIOTIN [Concomitant]
  6. ENOXAPARIN SODIUM [Concomitant]
  7. SODIUM SALT [Concomitant]

REACTIONS (2)
  - CHOLESTASIS [None]
  - CYTOLYTIC HEPATITIS [None]
